FAERS Safety Report 5285854-1 (Version None)
Quarter: 2007Q1

REPORT INFORMATION
  Report Type: 
  Country: None (occurrence: None)
  Receive Date: 20070329
  Receipt Date: 20070306
  Transmission Date: 20070707
  Serious: Yes (Other)
  Sender: FDA-Public Use
  Company Number: CIO07003531

PATIENT
  Age: 34 Year
  Sex: Female
  Weight: 81.6 kg

DRUGS (3)
  1. PEPTO-BISMOL, CHERRY FLAVOR(BISMUTH SUBSALICYLATE 262 MG, CALCIUM CARB [Suspect]
     Indication: INFLUENZA
     Dosage: 2 TABLET, 2/DAY FOR 1 DAY, ORAL
     Route: 048
     Dates: start: 20070305, end: 20070305
  2. ^INHALER^ [Concomitant]
  3. ANTIBIOTIC /00011701/ (CHLORAMPHENICOL) [Concomitant]

REACTIONS (5)
  - CHEST PAIN [None]
  - DRUG ADMINISTRATION ERROR [None]
  - DRUG HYPERSENSITIVITY [None]
  - DYSPNOEA [None]
  - LUNG DISORDER [None]
